FAERS Safety Report 10054784 (Version 2)
Quarter: 2014Q2

REPORT INFORMATION
  Report Type: Spontaneous
  Country: CZ (occurrence: CZ)
  Receive Date: 20140402
  Receipt Date: 20140402
  Transmission Date: 20141212
  Serious: Yes (Other)
  Sender: FDA-Public Use
  Company Number: CZ-BAXTER-2014BAX014193

PATIENT
  Age: 3 Year
  Sex: Female

DRUGS (2)
  1. KIOVIG 100 MG/ML INFUZN? ROZTOK [Suspect]
     Indication: IMMUNE THROMBOCYTOPENIC PURPURA
     Dosage: 1 G/KG
     Route: 042
  2. KIOVIG 100 MG/ML INFUZN? ROZTOK [Suspect]
     Dosage: 1 G/KG
     Route: 042

REACTIONS (2)
  - Therapeutic response decreased [Recovered/Resolved]
  - Therapeutic response decreased [Recovered/Resolved]
